FAERS Safety Report 16508505 (Version 1)
Quarter: 2019Q3

REPORT INFORMATION
  Report Type: Spontaneous
  Country: US (occurrence: US)
  Receive Date: 20190702
  Receipt Date: 20190702
  Transmission Date: 20191004
  Serious: No
  Sender: FDA-Public Use
  Company Number: US-ROCHE-2116479

PATIENT
  Age: 13 Year
  Sex: Female

DRUGS (3)
  1. CAPECITABINE. [Suspect]
     Active Substance: CAPECITABINE
     Dosage: DOSING WAS DECREASED TO DAYS 1-7
     Route: 048
  2. SORAFENIB [Suspect]
     Active Substance: SORAFENIB
     Indication: HEPATOCELLULAR CARCINOMA
     Dosage: DAYS 1-28
     Route: 048
  3. CAPECITABINE. [Suspect]
     Active Substance: CAPECITABINE
     Indication: HEPATOCELLULAR CARCINOMA
     Dosage: ON DAYS 1-7 AND 14-21
     Route: 048

REACTIONS (2)
  - Palmar-plantar erythrodysaesthesia syndrome [Recovered/Resolved]
  - Dry skin [Recovered/Resolved]
